FAERS Safety Report 5919891-8 (Version None)
Quarter: 2008Q3

REPORT INFORMATION
  Report Type: 
  Country: None (occurrence: None)
  Receive Date: 20080909
  Receipt Date: 20070928
  Transmission Date: 20090109
  Serious: Yes (Life-Threatening, Hospitalization, Disabling)
  Sender: FDA-Public Use
  Company Number: 163-20785-07081855 (0)

PATIENT
  Age: 69 Year
  Sex: Male
  Weight: 72.5755 kg

DRUGS (22)
  1. THALOMID [Suspect]
     Indication: MULTIPLE MYELOMA
     Dosage: 200MG - 50MG, ORAL
     Route: 048
     Dates: start: 20051213, end: 20070415
  2. VELCADE [Suspect]
     Indication: MULTIPLE MYELOMA
     Dosage: 1.7MG - 1.6MG
     Dates: start: 20051210, end: 20070614
  3. DEXAMETHASONE TAB [Suspect]
     Indication: MULTIPLE MYELOMA
     Dosage: 40MG- 20MG
     Dates: start: 20051213, end: 20070405
  4. CISPLATIN [Suspect]
     Indication: MULTIPLE MYELOMA
     Dosage: 12 MG
     Dates: end: 20060902
  5. ADRIAMYCIN PFS [Suspect]
     Indication: MULTIPLE MYELOMA
     Dosage: 17MG - 12MG
     Dates: start: 20051213, end: 20060902
  6. CYCLOPHOSPHAMIDE [Suspect]
     Indication: MULTIPLE MYELOMA
     Dosage: 684MG - 480MG
     Dates: start: 20051213, end: 20060902
  7. ETOPOSIDE [Suspect]
     Indication: MULTIPLE MYELOMA
     Dosage: 68MG - 48MG
     Dates: start: 20051213, end: 20060902
  8. MELPHALAN (MELPHALAN) [Suspect]
     Indication: MULTIPLE MYELOMA
     Dosage: 217MG - 228MG
     Dates: start: 20060318, end: 20060617
  9. ROCEPHIN [Concomitant]
  10. ZITHROMAX [Concomitant]
  11. XOPENEX [Concomitant]
  12. ATROVENT [Concomitant]
  13. O2 (OXYGEN) [Concomitant]
  14. EYEDROPS (OPHTHALMOLOGICALS) [Concomitant]
  15. ZANTAC 150 [Concomitant]
  16. LEVOTHROID (LEVOTHYROXINE SODIUM) (TABLETS) [Concomitant]
  17. NOMAL SALINE (SODIUM CHLORIDE) [Concomitant]
  18. FLOMAX (TAMSULOSIN HYDROCHLORIDE) (0.4 MILLIGRAM, TABLETS) [Concomitant]
  19. LISINOPRIL (LISINOPRIL) (20 MILLIGRAM, TABLETS) [Concomitant]
  20. FLUCONAZOLE (FLUCONAZOLE) (200 MILLIGRAM, TABLETS) [Concomitant]
  21. ZOSYN (PIP/TAZO) (SOLUTION) [Concomitant]
  22. EPOGEN (EPOETIN ALFA) (SOLUTION) [Concomitant]

REACTIONS (2)
  - PNEUMONIA [None]
  - ULCER [None]
